FAERS Safety Report 6607173-0 (Version None)
Quarter: 2010Q1

REPORT INFORMATION
  Report Type: 
  Country: None (occurrence: None)
  Receive Date: 20100212
  Receipt Date: 20091106
  Transmission Date: 20100710
  Serious: No
  Sender: FDA-Public Use
  Company Number: 1000010001

PATIENT
  Age: 55 Year
  Sex: Female

DRUGS (13)
  1. SAVELLA [Suspect]
     Indication: FIBROMYALGIA
     Dosage: 12.5 MG, ONCE), ORAL : 25 MG (12.5 MG, 2 IN 1 D), ORAL : 50 MG (25 MG, 2 IN 1 D), ORAL
     Route: 048
     Dates: start: 20090101, end: 20090101
  2. SAVELLA [Suspect]
     Indication: FIBROMYALGIA
     Dosage: 12.5 MG, ONCE), ORAL : 25 MG (12.5 MG, 2 IN 1 D), ORAL : 50 MG (25 MG, 2 IN 1 D), ORAL
     Route: 048
     Dates: start: 20090901, end: 20090101
  3. SAVELLA [Suspect]
     Indication: FIBROMYALGIA
     Dosage: 12.5 MG, ONCE), ORAL : 25 MG (12.5 MG, 2 IN 1 D), ORAL : 50 MG (25 MG, 2 IN 1 D), ORAL
     Route: 048
     Dates: start: 20090901, end: 20090901
  4. SAVELLA [Suspect]
     Indication: FIBROMYALGIA
     Dosage: 100 MG (50 MG, 2 IN 1 D), ORAL
     Route: 048
     Dates: start: 20090101, end: 20091012
  5. LEFLUNOMIDE [Concomitant]
  6. METHADONE [Concomitant]
  7. TRAMADOL HCL [Concomitant]
  8. SYNTHROID [Concomitant]
  9. SINGULAIR [Concomitant]
  10. CYTOMEL [Concomitant]
  11. HUMIRA [Concomitant]
  12. THEOPHYLLINE [Concomitant]
  13. HYDROXYCHLOROQUINE SULFATE [Concomitant]

REACTIONS (2)
  - ALOPECIA [None]
  - HEADACHE [None]
